FAERS Safety Report 13379555 (Version 3)
Quarter: 2018Q1

REPORT INFORMATION
  Report Type: Spontaneous
  Country: FR (occurrence: FR)
  Receive Date: 20170328
  Receipt Date: 20180216
  Transmission Date: 20180508
  Serious: Yes (Hospitalization, Disabling, Congenital Anomaly, Other)
  Sender: FDA-Public Use
  Company Number: FR-ABBVIE-17P-056-1923595-00

PATIENT
  Sex: Male

DRUGS (3)
  1. DEPAKINE [Suspect]
     Active Substance: VALPROATE SODIUM
     Route: 064
     Dates: end: 19930720
  2. DEPAKINE [Suspect]
     Active Substance: VALPROATE SODIUM
     Indication: MATERNAL EXPOSURE TIMING UNSPECIFIED
     Route: 064
  3. LAMICTAL [Concomitant]
     Active Substance: LAMOTRIGINE
     Indication: EPILEPSY
     Route: 065

REACTIONS (39)
  - Foot deformity [Unknown]
  - Foetal exposure during pregnancy [Unknown]
  - Gait disturbance [Unknown]
  - Speech disorder developmental [Recovering/Resolving]
  - Developmental delay [Unknown]
  - Enuresis [Unknown]
  - Congenital inguinal hernia [Unknown]
  - Congenital eyelid malformation [Unknown]
  - Unevaluable event [Unknown]
  - Epilepsy [Unknown]
  - Scaphocephaly [Recovered/Resolved]
  - Knee deformity [Unknown]
  - Dysuria [Unknown]
  - Aphasia [Unknown]
  - Foetal growth restriction [Unknown]
  - Ventricular septal defect [Recovered/Resolved]
  - Syndactyly [Unknown]
  - Foetal anticonvulsant syndrome [Unknown]
  - Visual impairment [Unknown]
  - Ill-defined disorder [Unknown]
  - Arnold-Chiari malformation [Unknown]
  - Dysmorphism [Unknown]
  - Autism spectrum disorder [Unknown]
  - Hypoacusis [Unknown]
  - Adenoidectomy [Unknown]
  - Dyspraxia [Unknown]
  - Hydrocele [Unknown]
  - Abnormal behaviour [Unknown]
  - Anxiety [Unknown]
  - Congenital nose malformation [Unknown]
  - Dyslexia [Unknown]
  - Cryptorchism [Unknown]
  - Myopia [Unknown]
  - Overweight [Unknown]
  - Brachydactyly [Unknown]
  - Scoliosis [Unknown]
  - Heart disease congenital [Unknown]
  - Pectus excavatum [Unknown]
  - Learning disorder [Unknown]

NARRATIVE: CASE EVENT DATE: 1933
